FAERS Safety Report 19279056 (Version 1)
Quarter: 2021Q2

REPORT INFORMATION
  Report Type: Spontaneous
  Country: US (occurrence: US)
  Receive Date: 20210520
  Receipt Date: 20210520
  Transmission Date: 20210717
  Serious: Yes (Hospitalization, Disabling, Other)
  Sender: FDA-Public Use
  Company Number: US-TEVA-2021-US-1912391

PATIENT
  Age: 70 Year
  Sex: Male

DRUGS (3)
  1. PREDNISONE. [Suspect]
     Active Substance: PREDNISONE
     Indication: DEAFNESS NEUROSENSORY
     Dosage: HIGH?DOSE
     Route: 048
  2. PHENOL. [Concomitant]
     Active Substance: PHENOL
     Indication: PRODUCT USED FOR UNKNOWN INDICATION
     Route: 061
  3. DEXAMETHASONE. [Suspect]
     Active Substance: DEXAMETHASONE
     Indication: DEAFNESS NEUROSENSORY
     Dosage: 0.5 ML OF 10 MG/ML?ROUTE: {INTRATYMPANIC}; STRENGTH: 10MG/ML
     Route: 050

REACTIONS (4)
  - Osteonecrosis [Recovering/Resolving]
  - Middle ear disorder [Recovering/Resolving]
  - Conductive deafness [Recovering/Resolving]
  - Drug ineffective [Unknown]
